FAERS Safety Report 7341634-4 (Version None)
Quarter: 2011Q1

REPORT INFORMATION
  Report Type: 
  Country: None (occurrence: None)
  Receive Date: 20110228
  Receipt Date: 20110218
  Transmission Date: 20110831
  Serious: Yes (Death, Hospitalization)
  Sender: FDA-Public Use
  Company Number: AJPN-11-0118

PATIENT
  Age: 76 Year
  Sex: Female
  Weight: 65 kg

DRUGS (8)
  1. AVAPRO [Concomitant]
  2. PREDNISOLONE [Suspect]
     Indication: PRODUCT USED FOR UNKNOWN INDICATION
     Dosage: ORAL
     Route: 048
  3. NOLVADEX [Concomitant]
  4. COCARL [Concomitant]
  5. ACETAMINOPHEN [Concomitant]
  6. MOHRUS TAPE [Concomitant]
  7. GRANISETRON (GRANTSETRON) [Concomitant]
  8. ABRAXANE [Suspect]
     Indication: BREAST CANCER METASTATIC
     Dosage: (416 MG)
     Dates: start: 20110202, end: 20110202

REACTIONS (25)
  - WHITE BLOOD CELL COUNT DECREASED [None]
  - UPPER GASTROINTESTINAL HAEMORRHAGE [None]
  - BURNING SENSATION [None]
  - BLOOD PH DECREASED [None]
  - HAEMOGLOBIN DECREASED [None]
  - WHITE BLOOD CELLS URINE POSITIVE [None]
  - LOSS OF CONSCIOUSNESS [None]
  - RESPIRATORY RATE DECREASED [None]
  - CARDIAC ARREST [None]
  - HYPOAESTHESIA [None]
  - HYPERTENSION [None]
  - PCO2 INCREASED [None]
  - DECREASED APPETITE [None]
  - PULSELESS ELECTRICAL ACTIVITY [None]
  - PLATELET COUNT DECREASED [None]
  - WHITE BLOOD CELL COUNT INCREASED [None]
  - PO2 DECREASED [None]
  - BLOOD PRESSURE DECREASED [None]
  - FIBRIN D DIMER INCREASED [None]
  - NEUTROPHIL COUNT DECREASED [None]
  - PROTHROMBIN TIME PROLONGED [None]
  - MUSCULAR WEAKNESS [None]
  - NEUTROPHIL PERCENTAGE INCREASED [None]
  - C-REACTIVE PROTEIN INCREASED [None]
  - HEART RATE INCREASED [None]
